FAERS Safety Report 7112164-X (Version None)
Quarter: 2010Q4

REPORT INFORMATION
  Report Type: 
  Country: None (occurrence: None)
  Receive Date: 20101119
  Receipt Date: 20100125
  Transmission Date: 20110411
  Serious: No
  Sender: FDA-Public Use
  Company Number: A0841242A

PATIENT
  Age: 76 Year
  Sex: Male

DRUGS (9)
  1. AVODART [Suspect]
     Indication: BENIGN PROSTATIC HYPERPLASIA
     Dosage: .5MG PER DAY
     Route: 048
     Dates: start: 20091001, end: 20100120
  2. MULTAQ [Suspect]
     Indication: ATRIAL FIBRILLATION
     Dosage: 400MG TWICE PER DAY
     Route: 048
     Dates: start: 20090901
  3. GLYBURIDE [Concomitant]
  4. ACTOS [Concomitant]
  5. METOPROLOL [Concomitant]
  6. LEVOTHYROXINE SODIUM [Concomitant]
  7. PIOGLITAZONE [Concomitant]
  8. LISINOPRIL [Concomitant]
  9. PRAVASTATIN [Concomitant]

REACTIONS (2)
  - DIZZINESS [None]
  - VOMITING [None]
